FAERS Safety Report 6225471-X (Version None)
Quarter: 2009Q2

REPORT INFORMATION
  Report Type: 
  Country: None (occurrence: None)
  Receive Date: 20090612
  Receipt Date: 20090421
  Transmission Date: 20091009
  Serious: No
  Sender: FDA-Public Use
  Company Number: US-ABBOTT-09P-163-0569119-00

PATIENT
  Sex: Female
  Weight: 86.26 kg

DRUGS (2)
  1. HUMIRA [Suspect]
     Indication: JUVENILE ARTHRITIS
     Route: 058
     Dates: start: 20090101
  2. PLAQUENIL [Concomitant]
     Indication: JUVENILE ARTHRITIS
     Dates: end: 20090401

REACTIONS (4)
  - BACTERIAL INFECTION [None]
  - OROPHARYNGEAL PAIN [None]
  - PAIN [None]
  - RASH [None]
